FAERS Safety Report 21192189 (Version 1)
Quarter: 2022Q3

REPORT INFORMATION
  Report Type: Spontaneous
  Country: AU (occurrence: AU)
  Receive Date: 20220809
  Receipt Date: 20220809
  Transmission Date: 20221027
  Serious: Yes (Other)
  Sender: FDA-Public Use
  Company Number: AU-BAYER-2022P009361

PATIENT
  Sex: Female

DRUGS (1)
  1. GADOBUTROL [Suspect]
     Active Substance: GADOBUTROL
     Indication: Multiple sclerosis
     Dosage: 4 ML, ONCE

REACTIONS (2)
  - Nausea [None]
  - Haematemesis [None]

NARRATIVE: CASE EVENT DATE: 20220729
